FAERS Safety Report 8883792 (Version 1)
Quarter: 2012Q4

REPORT INFORMATION
  Report Type: 
  Country: US (occurrence: US)
  Receive Date: 20121102
  Receipt Date: 20121102
  Transmission Date: 20130627
  Serious: Yes (Death)
  Sender: FDA-Public Use
  Company Number: US-ARROW-2012-18381

PATIENT
  Sex: Male

DRUGS (1)
  1. FENTANYL [Suspect]
     Indication: PAIN
     Dosage: 1 patch every three days ^normal manner as prescribed^
     Route: 062

REACTIONS (3)
  - Toxicity to various agents [Fatal]
  - Product quality issue [None]
  - Device leakage [None]
